FAERS Safety Report 24757321 (Version 1)
Quarter: 2024Q4

REPORT INFORMATION
  Report Type: Spontaneous
  Country: CN (occurrence: CN)
  Receive Date: 20241220
  Receipt Date: 20241220
  Transmission Date: 20250115
  Serious: Yes (Hospitalization)
  Sender: AUROBINDO
  Company Number: CN-AUROBINDO-AUR-APL-2024-060987

PATIENT
  Age: 48 Year
  Sex: Male

DRUGS (18)
  1. PANTOPRAZOLE SODIUM [Suspect]
     Active Substance: PANTOPRAZOLE SODIUM
     Indication: Cardiac failure chronic
     Dosage: 40 MILLIGRAM, ONCE A DAY
     Route: 065
     Dates: start: 20241107, end: 20241114
  2. PANTOPRAZOLE SODIUM [Suspect]
     Active Substance: PANTOPRAZOLE SODIUM
     Indication: Dilated cardiomyopathy
  3. PANTOPRAZOLE SODIUM [Suspect]
     Active Substance: PANTOPRAZOLE SODIUM
     Indication: Liver function test abnormal
  4. ITOPRIDE HYDROCHLORIDE [Suspect]
     Active Substance: ITOPRIDE HYDROCHLORIDE
     Indication: Cardiac failure chronic
     Dosage: 50 MILLIGRAM, 3 TIMES A DAY
     Route: 065
     Dates: start: 20241107, end: 20241114
  5. ITOPRIDE HYDROCHLORIDE [Suspect]
     Active Substance: ITOPRIDE HYDROCHLORIDE
     Indication: Dilated cardiomyopathy
  6. ITOPRIDE HYDROCHLORIDE [Suspect]
     Active Substance: ITOPRIDE HYDROCHLORIDE
     Indication: Liver function test abnormal
  7. BENZBROMARONE [Suspect]
     Active Substance: BENZBROMARONE
     Indication: Cardiac failure chronic
     Dosage: 50 MILLIGRAM, ONCE A DAY
     Route: 065
     Dates: start: 20241107, end: 20241114
  8. BENZBROMARONE [Suspect]
     Active Substance: BENZBROMARONE
     Indication: Dilated cardiomyopathy
  9. BENZBROMARONE [Suspect]
     Active Substance: BENZBROMARONE
     Indication: Liver function test abnormal
  10. RIVAROXABAN [Suspect]
     Active Substance: RIVAROXABAN
     Indication: Cardiac failure chronic
     Dosage: 10 MILLIGRAM, ONCE A DAY
     Route: 065
     Dates: start: 20241108, end: 20241111
  11. RIVAROXABAN [Suspect]
     Active Substance: RIVAROXABAN
     Indication: Dilated cardiomyopathy
  12. RIVAROXABAN [Suspect]
     Active Substance: RIVAROXABAN
     Indication: Liver function test abnormal
  13. SPIRONOLACTONE [Suspect]
     Active Substance: SPIRONOLACTONE
     Indication: Cardiac failure chronic
     Dosage: 20 MILLIGRAM, ONCE A DAY
     Route: 065
     Dates: start: 20241107, end: 20241108
  14. SPIRONOLACTONE [Suspect]
     Active Substance: SPIRONOLACTONE
     Indication: Dilated cardiomyopathy
  15. SPIRONOLACTONE [Suspect]
     Active Substance: SPIRONOLACTONE
     Indication: Liver function test abnormal
  16. ACARBOSE [Suspect]
     Active Substance: ACARBOSE
     Indication: Product used for unknown indication
     Dosage: 100 MILLIGRAM, ONCE A DAY
     Route: 065
  17. PHOSPHOLIPID [Suspect]
     Active Substance: PHOSPHOLIPID
     Indication: Product used for unknown indication
     Dosage: 456 MILLIGRAM, 3 TIMES A DAY
     Route: 065
  18. FUROSEMIDE [Suspect]
     Active Substance: FUROSEMIDE
     Indication: Product used for unknown indication
     Dosage: UNK
     Route: 065

REACTIONS (1)
  - Blood bilirubin increased [Recovering/Resolving]

NARRATIVE: CASE EVENT DATE: 20241114
